FAERS Safety Report 8976669 (Version 1)
Quarter: 2012Q4

REPORT INFORMATION
  Report Type: 
  Country: US (occurrence: US)
  Receive Date: 20121220
  Receipt Date: 20121220
  Transmission Date: 20130627
  Serious: Yes (Other)
  Sender: FDA-Public Use
  Company Number: US-NAPPMUNDI-USA-2012-0096901

PATIENT
  Sex: Male

DRUGS (11)
  1. OXYCONTIN (NDA 22-272) [Suspect]
     Indication: PAIN
     Dosage: 30 mg, daily
     Route: 048
  2. OXYCONTIN (NDA 22-272) [Suspect]
     Dosage: 2.5 to 5mg daily
     Route: 048
  3. CHANTIX [Suspect]
     Indication: SMOKING CESSATION THERAPY
     Dosage: 1 mg, bid
     Route: 048
     Dates: end: 20121103
  4. LISINOPRIL [Concomitant]
     Indication: HYPERTENSION
     Dosage: 20 mg, daily
  5. LANSOPRAZOLE [Concomitant]
     Indication: ABDOMINAL DISCOMFORT
  6. LEVOTHYROXIN [Concomitant]
     Indication: HYPOTHYROIDISM
     Dosage: 0.75 mg, daily
  7. DIAZEPAM [Concomitant]
     Indication: ANXIETY
  8. FENTANYL [Concomitant]
     Indication: PAIN
     Dosage: 50mcg or 75mcg daily
     Route: 062
  9. MELOXICAM [Concomitant]
     Indication: ARTHRITIS
     Dosage: UNK
     Dates: end: 2012
  10. ALCOHOL PATCHES [Concomitant]
     Indication: PRODUCT USED FOR UNKNOWN INDICATION
  11. ULTRAM [Concomitant]
     Indication: PRODUCT USED FOR UNKNOWN INDICATION

REACTIONS (13)
  - Blood pressure increased [Unknown]
  - Angina pectoris [Unknown]
  - Weight decreased [Unknown]
  - Pain [Unknown]
  - Stress [Unknown]
  - Nausea [Recovered/Resolved]
  - Mental impairment [Unknown]
  - Headache [Recovered/Resolved]
  - Decreased appetite [Unknown]
  - Somnolence [Unknown]
  - Asthenia [Unknown]
  - Decreased activity [Unknown]
  - Unevaluable event [Unknown]
